FAERS Safety Report 23403818 (Version 1)
Quarter: 2024Q1

REPORT INFORMATION
  Report Type: Spontaneous
  Country: ES (occurrence: ES)
  Receive Date: 20240116
  Receipt Date: 20240116
  Transmission Date: 20240409
  Serious: Yes (Other)
  Sender: FDA-Public Use
  Company Number: ES-CELLTRION INC.-2024ES000717

PATIENT

DRUGS (1)
  1. BEVACIZUMAB [Suspect]
     Active Substance: BEVACIZUMAB
     Indication: Neurofibromatosis
     Route: 065

REACTIONS (5)
  - Neurofibromatosis [Unknown]
  - Renal-limited thrombotic microangiopathy [Unknown]
  - Hypertension [Unknown]
  - Quality of life decreased [Unknown]
  - Off label use [Unknown]
